FAERS Safety Report 6020272-X (Version None)
Quarter: 2008Q4

REPORT INFORMATION
  Report Type: 
  Country: None (occurrence: None)
  Receive Date: 20081226
  Receipt Date: 20081219
  Transmission Date: 20090506
  Serious: Yes (Hospitalization)
  Sender: FDA-Public Use
  Company Number: PHHY2008JP31758

PATIENT
  Age: 57 Year
  Sex: Male

DRUGS (1)
  1. METOPIRONE [Suspect]
     Indication: CUSHING'S SYNDROME

REACTIONS (2)
  - BRONCHOALVEOLAR LAVAGE [None]
  - PNEUMOCYSTIS JIROVECI PNEUMONIA [None]
